FAERS Safety Report 15461025 (Version 8)
Quarter: 2018Q4

REPORT INFORMATION
  Report Type: Report from Study
  Country: GB (occurrence: GB)
  Receive Date: 20181003
  Receipt Date: 20181207
  Transmission Date: 20190204
  Serious: Yes (Hospitalization)
  Sender: FDA-Public Use
  Company Number: GB-PFIZER INC-2018393076

PATIENT
  Weight: 13.5 kg

DRUGS (7)
  1. MITOXANTRONE HCL [Suspect]
     Active Substance: MITOXANTRONE HYDROCHLORIDE
     Indication: ACUTE MYELOID LEUKAEMIA
     Dosage: 7 MG/M2, 1X/DAY, CYCLIC
     Route: 042
     Dates: start: 20180317, end: 20180507
  2. GEMTUZUMAB OZOGAMICIN [Suspect]
     Active Substance: GEMTUZUMAB OZOGAMICIN
     Indication: ACUTE MYELOID LEUKAEMIA
     Dosage: 1.8 MG, CYCLIC
     Route: 042
     Dates: start: 20180320, end: 20180326
  3. CYCLIZINE HYDROCHLORIDE [Concomitant]
     Active Substance: CYCLIZINE HYDROCHLORIDE
     Indication: NAUSEA
     Dosage: 125 MG, 3X/DAY
     Dates: start: 20180512, end: 20180514
  4. CYTARABINE. [Concomitant]
     Active Substance: CYTARABINE
     Indication: ACUTE MYELOID LEUKAEMIA
     Dosage: UNK, ONCE DAILY, CYCLIC
     Route: 042
  5. ORAMORPH [Concomitant]
     Active Substance: MORPHINE SULFATE
     Indication: PAIN
     Dosage: 2.5 MG, AS NEEDED
     Dates: start: 20180511, end: 20180520
  6. ITRACONAZOLE. [Concomitant]
     Active Substance: ITRACONAZOLE
     Indication: ANTIFUNGAL PROPHYLAXIS
     Dosage: 35 MG, 2X/DAY
     Dates: start: 20180512
  7. ONDANSETRON [Concomitant]
     Active Substance: ONDANSETRON
     Indication: NAUSEA
     Dosage: 2 MG, 3X/DAY
     Dates: start: 20180512, end: 20180514

REACTIONS (2)
  - Neutrophil count decreased [Recovered/Resolved]
  - Febrile neutropenia [Recovered/Resolved]

NARRATIVE: CASE EVENT DATE: 20180514
